FAERS Safety Report 7768344-3 (Version None)
Quarter: 2011Q3

REPORT INFORMATION
  Report Type: 
  Country: None (occurrence: None)
  Receive Date: 20110922
  Receipt Date: 20110627
  Transmission Date: 20111222
  Serious: No
  Sender: FDA-Public Use
  Company Number: US-ASTRAZENECA-2011SE38826

PATIENT
  Age: 61 Year
  Sex: Female
  Weight: 77.1 kg

DRUGS (5)
  1. SIMVASTATIN [Concomitant]
     Indication: HYPERCHOLESTEROLAEMIA
  2. OMEPRAZOLE [Concomitant]
  3. SEROQUEL [Suspect]
     Indication: SLEEP DISORDER
     Route: 048
     Dates: start: 20060101
  4. VITAMIN TAB [Concomitant]
  5. MINERAL TAB [Concomitant]

REACTIONS (3)
  - TREMOR [None]
  - OFF LABEL USE [None]
  - WEIGHT INCREASED [None]
